FAERS Safety Report 8058113-1 (Version None)
Quarter: 2012Q1

REPORT INFORMATION
  Report Type: 
  Country: None (occurrence: None)
  Receive Date: 20120120
  Receipt Date: 20120110
  Transmission Date: 20120608
  Serious: Yes (Hospitalization)
  Sender: FDA-Public Use
  Company Number: US-BAYER-2010-002080

PATIENT
  Age: 19 Year
  Sex: Female
  Weight: 54 kg

DRUGS (4)
  1. YASMIN [Suspect]
     Indication: ACNE
     Dosage: UNK
     Dates: start: 20051201, end: 20090301
  2. DUAC [Concomitant]
     Dosage: UNK
     Dates: start: 20021101, end: 20090101
  3. YAZ [Suspect]
     Indication: ACNE
     Dosage: UNK
     Dates: start: 20041201, end: 20090301
  4. SULFAMETHOXAZOLE AND TRIMETHOPRIM [Concomitant]
     Dosage: UNK
     Route: 048
     Dates: start: 20090223

REACTIONS (1)
  - CHOLECYSTITIS [None]
